FAERS Safety Report 5406142-6 (Version None)
Quarter: 2007Q3

REPORT INFORMATION
  Report Type: 
  Country: None (occurrence: None)
  Receive Date: 20070802
  Receipt Date: 20070723
  Transmission Date: 20080115
  Serious: Yes (Hospitalization)
  Sender: FDA-Public Use
  Company Number: 2007-03453

PATIENT
  Sex: Female

DRUGS (1)
  1. TRELSTAR DEPOT (WITH CLIP'N'JECT)(WATSON LABORATORIES)(TRIPTORELIN PAM [Suspect]

REACTIONS (1)
  - SHOCK [None]
